FAERS Safety Report 16661764 (Version 1)
Quarter: 2019Q3

REPORT INFORMATION
  Report Type: Spontaneous
  Country: US (occurrence: US)
  Receive Date: 20190619
  Receipt Date: 20190619
  Transmission Date: 20191004
  Serious: No
  Sender: FDA-Public Use
  Company Number: None

PATIENT
  Age: 49 Year
  Sex: Female
  Weight: 57.15 kg

DRUGS (1)
  1. MACROBID [Suspect]
     Active Substance: NITROFURANTOIN\NITROFURANTOIN MONOHYDRATE
     Dosage: ?          QUANTITY:14 TOT - TOTAL;?
     Route: 048
     Dates: start: 20190610, end: 20190611

REACTIONS (9)
  - Nausea [None]
  - Productive cough [None]
  - Headache [None]
  - Pneumonia [None]
  - Dizziness [None]
  - Chills [None]
  - Pyrexia [None]
  - Chest pain [None]
  - Fatigue [None]

NARRATIVE: CASE EVENT DATE: 20190611
